FAERS Safety Report 5903135-7 (Version None)
Quarter: 2008Q3

REPORT INFORMATION
  Report Type: 
  Country: None (occurrence: None)
  Receive Date: 20080930
  Receipt Date: 20080918
  Transmission Date: 20090109
  Serious: Yes (Other)
  Sender: FDA-Public Use
  Company Number: US-TYCO HEALTHCARE/MALLINCKRODT-T200801552

PATIENT

DRUGS (2)
  1. OPTIRAY 300 [Suspect]
     Indication: ANGIOGRAM
     Dosage: 74 +/- 13 ML, SINGLE
  2. IV FLUIDS [Concomitant]
     Indication: VOLUME BLOOD
     Route: 042

REACTIONS (1)
  - NEPHROPATHY TOXIC [None]
